FAERS Safety Report 9260108 (Version 1)
Quarter: 2013Q2

REPORT INFORMATION
  Report Type: Spontaneous
  Country: US (occurrence: US)
  Receive Date: 20130429
  Receipt Date: 20130429
  Transmission Date: 20140414
  Serious: Yes (Hospitalization, Other)
  Sender: FDA-Public Use
  Company Number: US-SANOFI-AVENTIS-2013SA042235

PATIENT
  Sex: Male

DRUGS (3)
  1. LANTUS SOLOSTAR [Suspect]
     Indication: TYPE 2 DIABETES MELLITUS
     Dosage: DOSE:15 UNIT(S)
     Route: 051
     Dates: start: 2012
  2. SOLOSTAR [Suspect]
     Indication: TYPE 2 DIABETES MELLITUS
  3. LASIX [Concomitant]

REACTIONS (6)
  - Gastrooesophageal reflux disease [Unknown]
  - Cataract [Unknown]
  - Vision blurred [Unknown]
  - Cellulitis [Recovered/Resolved]
  - Hypoglycaemic unconsciousness [Unknown]
  - Blood glucose decreased [Unknown]
